FAERS Safety Report 9478324 (Version 1)
Quarter: 2013Q3

REPORT INFORMATION
  Report Type: Spontaneous
  Country: DE (occurrence: DE)
  Receive Date: 20130827
  Receipt Date: 20130827
  Transmission Date: 20140515
  Serious: Yes (Other)
  Sender: FDA-Public Use
  Company Number: DE-ROCHE-1266020

PATIENT
  Sex: Female

DRUGS (4)
  1. TOCILIZUMAB [Suspect]
     Indication: RHEUMATOID ARTHRITIS
     Route: 042
     Dates: start: 201210
  2. DECORTIN [Concomitant]
     Indication: RHEUMATOID ARTHRITIS
     Route: 065
     Dates: start: 201210
  3. CALCIUM D3 [Concomitant]
  4. PANTOZOL (GERMANY) [Concomitant]

REACTIONS (2)
  - Subarachnoid haemorrhage [Recovered/Resolved]
  - Aneurysm [Unknown]
